FAERS Safety Report 13049008 (Version 1)
Quarter: 2016Q4

REPORT INFORMATION
  Report Type: Spontaneous
  Country: US (occurrence: US)
  Receive Date: 20161221
  Receipt Date: 20161221
  Transmission Date: 20170207
  Serious: Yes (Life-Threatening, Other)
  Sender: FDA-Public Use
  Company Number: US-ASTRAZENECA-2016SF34579

PATIENT
  Age: 63 Year
  Sex: Female

DRUGS (4)
  1. LAMICTAL [Suspect]
     Active Substance: LAMOTRIGINE
     Route: 065
  2. SEROQUEL [Suspect]
     Active Substance: QUETIAPINE FUMARATE
     Route: 048
  3. PAXIL [Suspect]
     Active Substance: PAROXETINE HYDROCHLORIDE
     Indication: DEPRESSION
     Route: 065
     Dates: start: 2000
  4. WELLBUTRIN [Suspect]
     Active Substance: BUPROPION HYDROCHLORIDE
     Indication: EX-TOBACCO USER
     Route: 065

REACTIONS (11)
  - Major depression [Unknown]
  - Mania [Unknown]
  - Anxiety [Unknown]
  - Rapid eye movements sleep abnormal [Unknown]
  - Aggression [Unknown]
  - Tremor [Unknown]
  - Suicidal ideation [Unknown]
  - Delirium [Unknown]
  - Feeling abnormal [Unknown]
  - Loss of libido [Unknown]
  - Anger [Unknown]
